FAERS Safety Report 11706711 (Version 1)
Quarter: 2015Q4

REPORT INFORMATION
  Report Type: Spontaneous
  Country: HR (occurrence: HR)
  Receive Date: 20151106
  Receipt Date: 20151106
  Transmission Date: 20160304
  Serious: Yes (Hospitalization)
  Sender: FDA-Public Use
  Company Number: HR-ROXANE LABORATORIES, INC.-2015-RO-01820RO

PATIENT
  Age: 22 Month
  Sex: Female

DRUGS (1)
  1. PROPRANOLOL [Suspect]
     Active Substance: PROPRANOLOL\PROPRANOLOL HYDROCHLORIDE
     Indication: INFANTILE HAEMANGIOMA
     Route: 048

REACTIONS (2)
  - Seizure [Recovered/Resolved]
  - Hypoglycaemia [Recovered/Resolved]
